FAERS Safety Report 8092709-6 (Version None)
Quarter: 2012Q1

REPORT INFORMATION
  Report Type: 
  Country: None (occurrence: None)
  Receive Date: 20120128
  Receipt Date: 20110803
  Transmission Date: 20120608
  Serious: Yes (Hospitalization)
  Sender: FDA-Public Use
  Company Number: US-ABBOTT-11P-163-0843876-00

PATIENT
  Sex: Male
  Weight: 108.96 kg

DRUGS (6)
  1. REMICADE [Suspect]
     Indication: PSORIASIS
     Route: 042
     Dates: start: 20100921, end: 20110427
  2. HUMIRA [Suspect]
     Indication: PSORIASIS
     Dates: start: 20060428, end: 20100818
  3. HUMIRA [Suspect]
     Dates: start: 20110616
  4. REMICADE [Suspect]
     Dates: start: 20110427
  5. CORTICOSTEROIDS [Concomitant]
     Indication: PRODUCT USED FOR UNKNOWN INDICATION
     Route: 061
  6. HUMIRA [Suspect]
     Dosage: 1 IN 2 WEEKS, NO LOADING DOSE
     Dates: start: 20110519

REACTIONS (2)
  - DYSPNOEA [None]
  - DRUG INEFFECTIVE [None]
